FAERS Safety Report 5660392-2 (Version None)
Quarter: 2008Q1

REPORT INFORMATION
  Report Type: 
  Country: None (occurrence: None)
  Receive Date: 20080311
  Receipt Date: 20071015
  Transmission Date: 20080703
  Serious: No
  Sender: FDA-Public Use
  Company Number: US-BAYER-200713339BCC

PATIENT
  Age: 29 Year
  Sex: Female
  Weight: 73 kg

DRUGS (2)
  1. ALEVE [Suspect]
     Indication: PHARYNGOLARYNGEAL PAIN
     Dosage: UNIT DOSE: 220 MG
     Route: 048
     Dates: start: 20071011
  2. ALEVE [Suspect]
     Dosage: TOTAL DAILY DOSE: 220 MG  UNIT DOSE: 220 MG
     Route: 048
     Dates: start: 20071011

REACTIONS (2)
  - ABDOMINAL PAIN [None]
  - ABDOMINAL PAIN UPPER [None]
